FAERS Safety Report 13078800 (Version 2)
Quarter: 2017Q1

REPORT INFORMATION
  Report Type: Spontaneous
  Country: NO (occurrence: NO)
  Receive Date: 20170102
  Receipt Date: 20170310
  Transmission Date: 20170428
  Serious: Yes (Death, Other)
  Sender: FDA-Public Use
  Company Number: NO-ASTRAZENECA-2016SF38042

PATIENT
  Age: 1099 Month
  Sex: Female
  Weight: 50 kg

DRUGS (6)
  1. ISMO [Concomitant]
     Active Substance: ISOSORBIDE MONONITRATE
     Indication: ANGINA PECTORIS
     Route: 048
  2. PARACET [Concomitant]
     Active Substance: ACETAMINOPHEN
  3. CARDIZEM UNO [Concomitant]
  4. SOMAC [Concomitant]
     Active Substance: PANTOPRAZOLE SODIUM
  5. SOBRIL [Concomitant]
     Active Substance: OXAZEPAM
     Dosage: 5 MG MORNING, 10 MG EVENING AND + 5-10 MG AS NEEDED
  6. QUETIAPINE. [Suspect]
     Active Substance: QUETIAPINE
     Indication: HALLUCINATION
     Route: 048
     Dates: start: 20161203, end: 20161212

REACTIONS (5)
  - Parkinsonism [Fatal]
  - Dementia with Lewy bodies [Unknown]
  - Weight decreased [Unknown]
  - Fatigue [Unknown]
  - Sedation [Fatal]

NARRATIVE: CASE EVENT DATE: 201612
